FAERS Safety Report 8827943 (Version 1)
Quarter: 2012Q4

REPORT INFORMATION
  Report Type: 
  Country: US (occurrence: US)
  Receive Date: 20121008
  Receipt Date: 20121008
  Transmission Date: 20130627
  Serious: Yes (Other)
  Sender: FDA-Public Use
  Company Number: US-JNJFOC-20120912647

PATIENT
  Sex: Male
  Weight: 94.8 kg

DRUGS (1)
  1. INVEGA SUSTENNA [Suspect]
     Indication: SCHIZOPHRENIA
     Route: 030
     Dates: start: 20111120

REACTIONS (2)
  - Weight increased [Not Recovered/Not Resolved]
  - Drug dose omission [Not Recovered/Not Resolved]
